FAERS Safety Report 9361673 (Version 3)
Quarter: 2013Q3

REPORT INFORMATION
  Report Type: Spontaneous
  Country: US (occurrence: US)
  Receive Date: 20130621
  Receipt Date: 20130904
  Transmission Date: 20140515
  Serious: Yes (Hospitalization, Other)
  Sender: FDA-Public Use
  Company Number: US-GILEAD-2013-0077463

PATIENT
  Sex: Female

DRUGS (2)
  1. LETAIRIS [Suspect]
     Indication: PULMONARY HYPERTENSION
     Route: 048
  2. LETAIRIS [Suspect]
     Indication: CARDIAC VALVE DISEASE

REACTIONS (2)
  - Pulmonary hypertension [Unknown]
  - Cardiac disorder [Unknown]
